FAERS Safety Report 17116240 (Version 1)
Quarter: 2019Q4

REPORT INFORMATION
  Report Type: Report from Study
  Country: FR (occurrence: FR)
  Receive Date: 20191205
  Receipt Date: 20191205
  Transmission Date: 20200122
  Serious: Yes (Death)
  Sender: FDA-Public Use
  Company Number: FR-PFIZER INC-2019515122

PATIENT
  Sex: Female

DRUGS (2)
  1. DOXORUBICIN HCL [Suspect]
     Active Substance: DOXORUBICIN HYDROCHLORIDE
     Indication: BREAST CANCER
     Dosage: 50 MG/M2, CYCLIC (SLOW IV INFUSION ON DAY 1, WITH EACH COURSE REPEATED AT 3 WEEK INTERVALS)
     Route: 041
  2. NAVELBINE [Suspect]
     Active Substance: VINORELBINE TARTRATE
     Indication: BREAST CANCER
     Dosage: 25 MG/M2, CYCLIC (30 MINUTES ON DAYS 1 AND 8, WITH EACH COURSE REPEATED AT 3 WEEK INTERVALS)
     Route: 042

REACTIONS (2)
  - Septic shock [Fatal]
  - Neutropenic sepsis [Fatal]
